FAERS Safety Report 8196773-5 (Version None)
Quarter: 2012Q1

REPORT INFORMATION
  Report Type: 
  Country: None (occurrence: None)
  Receive Date: 20120309
  Receipt Date: 20120306
  Transmission Date: 20120608
  Serious: Yes (Hospitalization, Other)
  Sender: FDA-Public Use
  Company Number: US-PFIZER INC-2012061131

PATIENT
  Sex: Female

DRUGS (2)
  1. PROTONIX [Suspect]
     Dosage: UNK
  2. PANTOPRAZOLE [Suspect]
     Dosage: UNK

REACTIONS (5)
  - FALL [None]
  - BLINDNESS [None]
  - INTRACRANIAL ANEURYSM [None]
  - BLOOD POTASSIUM DECREASED [None]
  - INTESTINAL OBSTRUCTION [None]
